FAERS Safety Report 5364570-1 (Version None)
Quarter: 2007Q2

REPORT INFORMATION
  Report Type: 
  Country: None (occurrence: None)
  Receive Date: 20070530
  Receipt Date: 20070118
  Transmission Date: 20071010
  Serious: No
  Sender: FDA-Public Use
  Company Number: 2007PV028676

PATIENT
  Age: 62 Year
  Sex: Female
  Weight: 90.7194 kg

DRUGS (9)
  1. BYETTA [Suspect]
     Indication: DIABETES MELLITUS NON-INSULIN-DEPENDENT
     Dosage: 5 MCG;BID;SC   5 MCG;BID;SC
     Route: 058
     Dates: start: 20061216, end: 20070102
  2. BYETTA [Suspect]
     Indication: DIABETES MELLITUS NON-INSULIN-DEPENDENT
     Dosage: 5 MCG;BID;SC   5 MCG;BID;SC
     Route: 058
     Dates: start: 20070107
  3. GLUCOTROL XL [Concomitant]
  4. AVANDIA [Concomitant]
  5. PRECOSE [Concomitant]
  6. LEVOXYL [Concomitant]
  7. ZOCOR [Concomitant]
  8. PRINZIDE [Concomitant]
  9. ACIPHEX [Concomitant]

REACTIONS (5)
  - ERYTHEMA [None]
  - INJECTION SITE URTICARIA [None]
  - NAUSEA [None]
  - PRURITUS [None]
  - VOMITING [None]
